FAERS Safety Report 23391415 (Version 1)
Quarter: 2024Q1

REPORT INFORMATION
  Report Type: Spontaneous
  Country: US (occurrence: US)
  Receive Date: 20240111
  Receipt Date: 20240111
  Transmission Date: 20240410
  Serious: Yes (Death, Hospitalization)
  Sender: FDA-Public Use
  Company Number: US-BAYER-2024A002318

PATIENT
  Age: 102 Year
  Sex: Male

DRUGS (10)
  1. ASPIRIN [Suspect]
     Active Substance: ASPIRIN
     Route: 048
  2. POLYETHYLENE GLYCOL 3350 [Suspect]
     Active Substance: POLYETHYLENE GLYCOL 3350
     Route: 048
  3. AMLODIPINE [Suspect]
     Active Substance: AMLODIPINE BESYLATE
  4. CARVEDILOL [Suspect]
     Active Substance: CARVEDILOL
  5. TAMSULOSIN [Suspect]
     Active Substance: TAMSULOSIN
  6. FINASTERIDE [Suspect]
     Active Substance: FINASTERIDE
  7. ISOSORBIDE MONONITRATE [Suspect]
     Active Substance: ISOSORBIDE MONONITRATE
  8. LOSARTAN [Suspect]
     Active Substance: LOSARTAN
  9. VITAMINS [Suspect]
     Active Substance: VITAMINS
  10. HERBALS\SENNOSIDES [Suspect]
     Active Substance: HERBALS\SENNOSIDES

REACTIONS (2)
  - Product administration error [Fatal]
  - Toxicity to various agents [Fatal]
